FAERS Safety Report 23691580 (Version 3)
Quarter: 2024Q2

REPORT INFORMATION
  Report Type: Report from Study
  Country: FR (occurrence: FR)
  Receive Date: 20240401
  Receipt Date: 20240430
  Transmission Date: 20240716
  Serious: Yes (Hospitalization)
  Sender: FDA-Public Use
  Company Number: FR-TAKEDA-2024TUS028691

PATIENT
  Age: 11 Year
  Sex: Male

DRUGS (12)
  1. TEDUGLUTIDE [Suspect]
     Active Substance: TEDUGLUTIDE
     Indication: Short-bowel syndrome
     Dosage: 1.20 MILLIGRAM, QD
     Route: 042
     Dates: start: 20201218, end: 20230410
  2. TEDUGLUTIDE [Suspect]
     Active Substance: TEDUGLUTIDE
     Indication: Short-bowel syndrome
     Dosage: 1.20 MILLIGRAM, QD
     Route: 042
     Dates: start: 20201218, end: 20230410
  3. TEDUGLUTIDE [Suspect]
     Active Substance: TEDUGLUTIDE
     Indication: Short-bowel syndrome
     Dosage: 1.20 MILLIGRAM, QD
     Route: 042
     Dates: start: 20201218, end: 20230410
  4. TEDUGLUTIDE [Suspect]
     Active Substance: TEDUGLUTIDE
     Indication: Short-bowel syndrome
     Dosage: 1.20 MILLIGRAM, QD
     Route: 042
     Dates: start: 20201218, end: 20230410
  5. TEDUGLUTIDE [Suspect]
     Active Substance: TEDUGLUTIDE
     Dosage: 1.20 MILLIGRAM, QD
     Route: 042
     Dates: start: 20230411, end: 20230926
  6. TEDUGLUTIDE [Suspect]
     Active Substance: TEDUGLUTIDE
     Dosage: 1.20 MILLIGRAM, QD
     Route: 042
     Dates: start: 20230411, end: 20230926
  7. TEDUGLUTIDE [Suspect]
     Active Substance: TEDUGLUTIDE
     Dosage: 1.20 MILLIGRAM, QD
     Route: 042
     Dates: start: 20230411, end: 20230926
  8. TEDUGLUTIDE [Suspect]
     Active Substance: TEDUGLUTIDE
     Dosage: 1.20 MILLIGRAM, QD
     Route: 042
     Dates: start: 20230411, end: 20230926
  9. ACETAMINOPHEN [Concomitant]
     Active Substance: ACETAMINOPHEN
     Indication: Analgesic therapy
     Dosage: 420 MILLIGRAM, Q6HR
     Route: 042
     Dates: start: 20231027, end: 20231103
  10. FAMOTIDINE [Concomitant]
     Active Substance: FAMOTIDINE
     Indication: Gastrooesophageal reflux disease
     Dosage: 20 MILLIGRAM, QD
     Route: 048
     Dates: start: 20230926
  11. VANCOMYCIN [Concomitant]
     Active Substance: VANCOMYCIN
     Indication: Metapneumovirus infection
     Dosage: 1440 MILLIGRAM, QD
     Route: 042
     Dates: start: 20221205, end: 20221207
  12. METHYLPHENIDATE HYDROCHLORIDE [Concomitant]
     Active Substance: METHYLPHENIDATE HYDROCHLORIDE
     Indication: Attention deficit hyperactivity disorder
     Dosage: 20 MILLIGRAM
     Route: 048
     Dates: start: 202201

REACTIONS (2)
  - Subileus [Recovered/Resolved]
  - Asthenia [Recovered/Resolved]

NARRATIVE: CASE EVENT DATE: 20230701
